FAERS Safety Report 11186083 (Version 9)
Quarter: 2015Q4

REPORT INFORMATION
  Report Type: Spontaneous
  Country: US (occurrence: US)
  Receive Date: 20150612
  Receipt Date: 20151112
  Transmission Date: 20160304
  Serious: No
  Sender: FDA-Public Use
  Company Number: US-009507513-1505USA009894

PATIENT
  Age: 22 Year
  Sex: Female
  Weight: 141.4 kg

DRUGS (1)
  1. IMPLANON [Suspect]
     Active Substance: ETONOGESTREL
     Indication: CONTRACEPTION
     Dosage: 1 ROD, DOSAGE FORMULATION 68 MG, LEFT ARM
     Route: 059
     Dates: start: 20120418

REACTIONS (4)
  - Medical device complication [Not Recovered/Not Resolved]
  - Weight increased [Unknown]
  - Device difficult to use [Not Recovered/Not Resolved]
  - Incorrect drug administration duration [Unknown]

NARRATIVE: CASE EVENT DATE: 20120418
